FAERS Safety Report 7557122-6 (Version None)
Quarter: 2011Q2

REPORT INFORMATION
  Report Type: 
  Country: None (occurrence: None)
  Receive Date: 20110620
  Receipt Date: 20110608
  Transmission Date: 20111010
  Serious: Yes (Other)
  Sender: FDA-Public Use
  Company Number: US-ROCHE-735896

PATIENT
  Sex: Female
  Weight: 86.2 kg

DRUGS (2)
  1. ACCUTANE [Suspect]
     Indication: ACNE
     Route: 065
     Dates: start: 19870101, end: 19891231
  2. BIRTH CONTROL PILLS [Concomitant]

REACTIONS (6)
  - SUICIDAL IDEATION [None]
  - RECTAL HAEMORRHAGE [None]
  - COLITIS ULCERATIVE [None]
  - ABDOMINAL PAIN [None]
  - DEPRESSION [None]
  - NAUSEA [None]
